FAERS Safety Report 5731393-0 (Version None)
Quarter: 2008Q2

REPORT INFORMATION
  Report Type: 
  Country: None (occurrence: None)
  Receive Date: 20080506
  Receipt Date: 20080506
  Transmission Date: 20081010
  Serious: Yes (Hospitalization)
  Sender: FDA-Public Use
  Company Number: None

PATIENT
  Sex: Male
  Weight: 90.7 kg

DRUGS (16)
  1. CYCLOPHOSPHAMIDE [Suspect]
     Dosage: 1597 MG
  2. DOXIL [Suspect]
     Dosage: 85 MG
  3. NEULASTA [Suspect]
     Dosage: 6 MG
  4. PREDNISONE TAB [Suspect]
     Dosage: 400 MG
  5. RITUXIMAB (MOAB C2B8 ANTI CD20, CHIMERIC) [Suspect]
     Dosage: 798 MG
  6. VINCRISTINE SULFATE [Suspect]
     Dosage: 2 MG
  7. ALTACE [Concomitant]
  8. ASPIRIN [Concomitant]
  9. DARVON [Concomitant]
  10. FAMOTIDINE [Concomitant]
  11. LIPITOR [Concomitant]
  12. MAGNESIUM OXIDE [Concomitant]
  13. METFORMIN ER [Concomitant]
  14. PHENERGAN [Concomitant]
  15. REGULAR INSULIN [Concomitant]
  16. TOPROL-XL [Concomitant]

REACTIONS (3)
  - NEUTROPHIL COUNT DECREASED [None]
  - URINARY TRACT INFECTION [None]
  - WHITE BLOOD CELL COUNT DECREASED [None]
